FAERS Safety Report 9537331 (Version 2)
Quarter: 2013Q4

REPORT INFORMATION
  Report Type: Spontaneous
  Country: NO (occurrence: NO)
  Receive Date: 20130919
  Receipt Date: 20131024
  Transmission Date: 20140711
  Serious: Yes (Death, Hospitalization, Other)
  Sender: FDA-Public Use
  Company Number: NO-CELGENEUS-122-21880-13090899

PATIENT
  Age: 60 Year
  Sex: Female

DRUGS (6)
  1. REVLIMID [Suspect]
     Indication: PLASMA CELL MYELOMA
     Route: 048
     Dates: start: 20130612, end: 20130626
  2. FRAGMIN [Suspect]
     Indication: AORTIC VALVE REPLACEMENT
     Route: 058
     Dates: start: 20130626
  3. DEXAMETHASONE [Concomitant]
     Indication: PLASMA CELL MYELOMA
     Route: 065
  4. PARACETAMOL [Concomitant]
     Indication: PAIN
     Route: 048
  5. OXYCONTIN [Concomitant]
     Indication: PAIN
     Route: 048
  6. OXYCODONE [Concomitant]
     Indication: PAIN
     Route: 048

REACTIONS (2)
  - Abdominal wall haemorrhage [Fatal]
  - Thrombocytopenia [Not Recovered/Not Resolved]
